FAERS Safety Report 9191752 (Version 1)
Quarter: 2013Q1

REPORT INFORMATION
  Report Type: Spontaneous
  Country: US (occurrence: US)
  Receive Date: 20130326
  Receipt Date: 20130326
  Transmission Date: 20140127
  Serious: Yes (Hospitalization, Other)
  Sender: FDA-Public Use
  Company Number: US-AMGEN-USASP2013019492

PATIENT
  Age: 5 Year
  Sex: Female
  Weight: 4.08 kg

DRUGS (1)
  1. ENBREL [Suspect]
     Dosage: 50 MG, QWK
     Route: 064
     Dates: start: 2007

REACTIONS (2)
  - Large for dates baby [Recovered/Resolved]
  - Eczema [Unknown]
